FAERS Safety Report 17533788 (Version 1)
Quarter: 2020Q1

REPORT INFORMATION
  Report Type: Spontaneous
  Country: US (occurrence: US)
  Receive Date: 20200312
  Receipt Date: 20200312
  Transmission Date: 20200409
  Serious: Yes (Other)
  Sender: FDA-Public Use
  Company Number: US-009507513-2003USA001550

PATIENT
  Sex: Female

DRUGS (1)
  1. INTRON A [Suspect]
     Active Substance: INTERFERON ALFA-2B
     Indication: CUTANEOUS T-CELL LYMPHOMA
     Dosage: 0.5 MILLILITER, 5 TIMES PER WEEK, STRENGTH: 6 MMU/ML
     Route: 058
     Dates: start: 20190613

REACTIONS (12)
  - Blindness [Unknown]
  - Disturbance in attention [Unknown]
  - Dizziness [Unknown]
  - Product use in unapproved indication [Unknown]
  - Alopecia [Unknown]
  - Pruritus [Unknown]
  - Rash [Unknown]
  - Heart rate irregular [Unknown]
  - Anaemia [Unknown]
  - Confusional state [Unknown]
  - Papule [Unknown]
  - Fatigue [Unknown]
